FAERS Safety Report 10098916 (Version 1)
Quarter: 2014Q2

REPORT INFORMATION
  Report Type: Spontaneous
  Country: US (occurrence: US)
  Receive Date: 20140423
  Receipt Date: 20140423
  Transmission Date: 20141212
  Serious: Yes (Hospitalization)
  Sender: FDA-Public Use
  Company Number: US-B.I. PHARMACEUTICALS,INC./RIDGEFIELD-2014-BI-17815BP

PATIENT
  Age: 77 Year
  Sex: Male
  Weight: 100 kg

DRUGS (8)
  1. SPIRIVA [Suspect]
     Indication: PRODUCT USED FOR UNKNOWN INDICATION
     Dosage: 18 MCG
     Route: 055
     Dates: start: 2011, end: 20140116
  2. SYMBICORT [Concomitant]
     Dosage: 4 PUF
     Route: 055
     Dates: start: 2011
  3. INSULIN-LANIS [Concomitant]
     Indication: DIABETES MELLITUS
     Dosage: 40 MG
     Route: 058
  4. NOVALOG INSULIN [Concomitant]
     Indication: DIABETES MELLITUS
     Dosage: FORMULATION: SUBCUTANEOUS
     Route: 058
  5. DILTIAZEM [Concomitant]
     Indication: CARDIAC DISORDER
     Route: 065
  6. METFORMIN [Concomitant]
     Indication: DIABETES MELLITUS
     Dosage: 1700 MG
     Route: 048
  7. TERAZOSIN [Concomitant]
     Indication: PROSTATOMEGALY
     Dosage: 10 MG
     Route: 048
  8. LOSARTAN [Concomitant]
     Indication: HYPERTENSION
     Dosage: 50 MG
     Route: 048

REACTIONS (1)
  - Pneumonia [Recovered/Resolved]
